FAERS Safety Report 9247374 (Version 3)
Quarter: 2013Q2

REPORT INFORMATION
  Report Type: Spontaneous
  Country: JP (occurrence: JP)
  Receive Date: 20130423
  Receipt Date: 20130530
  Transmission Date: 20140414
  Serious: Yes (Other)
  Sender: FDA-Public Use
  Company Number: JP-PFIZER INC-2013125124

PATIENT
  Age: 85 Year
  Sex: Male

DRUGS (2)
  1. CELECOX [Suspect]
     Indication: SPINAL OSTEOARTHRITIS
     Dosage: 200 MG, DAILY
     Route: 048
     Dates: start: 20130226, end: 20130312
  2. MUCOSTA [Concomitant]
     Indication: PROPHYLAXIS
     Dosage: 100 MG BID (2 TABLETS)
     Route: 048
     Dates: start: 2011, end: 20130312

REACTIONS (1)
  - Eczema [Recovered/Resolved]
